FAERS Safety Report 8891016 (Version 4)
Quarter: 2014Q2

REPORT INFORMATION
  Report Type: Spontaneous
  Country: US (occurrence: US)
  Receive Date: 20121107
  Receipt Date: 20140610
  Transmission Date: 20141212
  Serious: Yes (Hospitalization, Other)
  Sender: FDA-Public Use
  Company Number: US-ASTRAZENECA-2012SE58030

PATIENT
  Age: 53 Year
  Sex: Female
  Weight: 70.3 kg

DRUGS (19)
  1. NEXIUM [Suspect]
     Indication: GASTROOESOPHAGEAL REFLUX DISEASE
     Route: 048
     Dates: start: 2006, end: 201402
  2. NEXIUM [Suspect]
     Indication: EROSIVE OESOPHAGITIS
     Route: 048
     Dates: start: 2006, end: 201402
  3. NEXIUM [Suspect]
     Indication: BARRETT^S OESOPHAGUS
     Route: 048
     Dates: start: 2006, end: 201402
  4. NEXIUM [Suspect]
     Indication: GASTROOESOPHAGEAL REFLUX DISEASE
     Dosage: TAKING 1 PILL A DAY INSTEAD OF HER PRESCRIBED 2 PILLS A DAY
     Route: 048
     Dates: start: 201312
  5. NEXIUM [Suspect]
     Indication: EROSIVE OESOPHAGITIS
     Dosage: TAKING 1 PILL A DAY INSTEAD OF HER PRESCRIBED 2 PILLS A DAY
     Route: 048
     Dates: start: 201312
  6. NEXIUM [Suspect]
     Indication: BARRETT^S OESOPHAGUS
     Dosage: TAKING 1 PILL A DAY INSTEAD OF HER PRESCRIBED 2 PILLS A DAY
     Route: 048
     Dates: start: 201312
  7. PRILOSEC OTC [Suspect]
     Indication: GASTROOESOPHAGEAL REFLUX DISEASE
     Route: 048
  8. PRILOSEC OTC [Suspect]
     Indication: EROSIVE OESOPHAGITIS
     Route: 048
  9. PRILOSEC OTC [Suspect]
     Indication: BARRETT^S OESOPHAGUS
     Route: 048
  10. PRILOSEC OTC [Suspect]
     Indication: GASTROOESOPHAGEAL REFLUX DISEASE
     Dosage: 8 PILLS PER DAY
     Route: 048
  11. PRILOSEC OTC [Suspect]
     Indication: EROSIVE OESOPHAGITIS
     Dosage: 8 PILLS PER DAY
     Route: 048
  12. PRILOSEC OTC [Suspect]
     Indication: BARRETT^S OESOPHAGUS
     Dosage: 8 PILLS PER DAY
     Route: 048
  13. OMEPRAZOLE [Suspect]
     Indication: GASTROOESOPHAGEAL REFLUX DISEASE
     Route: 048
  14. OMEPRAZOLE [Suspect]
     Indication: EROSIVE OESOPHAGITIS
     Route: 048
  15. OMEPRAZOLE [Suspect]
     Indication: BARRETT^S OESOPHAGUS
     Route: 048
  16. TUMS [Concomitant]
     Indication: GASTROOESOPHAGEAL REFLUX DISEASE
  17. PREVACID [Concomitant]
     Indication: GASTROOESOPHAGEAL REFLUX DISEASE
  18. PREVACID [Concomitant]
     Indication: EROSIVE OESOPHAGITIS
  19. PREVACID [Concomitant]
     Indication: BARRETT^S OESOPHAGUS

REACTIONS (26)
  - Diverticulitis [Unknown]
  - Dehydration [Unknown]
  - Vomiting projectile [Unknown]
  - Polyp [Unknown]
  - Malaise [Unknown]
  - Feeling abnormal [Unknown]
  - Lesion excision [Unknown]
  - Oesophageal disorder [Unknown]
  - Breast mass [Unknown]
  - Impaired healing [Unknown]
  - Gastric mucosal lesion [Unknown]
  - Pain [Unknown]
  - Gastrooesophageal reflux disease [Unknown]
  - Cough [Unknown]
  - Oropharyngeal pain [Unknown]
  - Sleep disorder [Unknown]
  - Eating disorder [Unknown]
  - Barrett^s oesophagus [Unknown]
  - Erosive oesophagitis [Unknown]
  - Memory impairment [Unknown]
  - Dyspepsia [Unknown]
  - Abdominal pain upper [Unknown]
  - Drug ineffective [Unknown]
  - Drug dose omission [Unknown]
  - Off label use [Unknown]
  - Intentional product misuse [Unknown]
